FAERS Safety Report 9190146 (Version 1)
Quarter: 2013Q1

REPORT INFORMATION
  Report Type: Spontaneous
  Country: CA (occurrence: CA)
  Receive Date: 20130326
  Receipt Date: 20130326
  Transmission Date: 20140127
  Serious: Yes (Hospitalization, Other)
  Sender: FDA-Public Use
  Company Number: CA-NAPPMUNDI-CAN-2012-0003928

PATIENT
  Sex: Male

DRUGS (50)
  1. OXYCONTIN TABLETS [Suspect]
     Indication: ARTHRALGIA
     Dosage: 10 MG, BID
     Dates: start: 20120130, end: 20120305
  2. OXYCONTIN TABLETS [Suspect]
     Indication: PRODUCT USED FOR UNKNOWN INDICATION
     Dosage: 20 MG, UNK
     Dates: start: 20110128, end: 20110328
  3. OXYCONTIN TABLETS [Suspect]
     Dosage: 15 MG, UNK
     Dates: start: 20110528, end: 20110630
  4. OXYCONTIN TABLETS [Suspect]
     Dosage: 10 MG, UNK
     Dates: start: 20110103, end: 20110716
  5. OXYCONTIN TABLETS [Suspect]
     Dosage: UNK
     Dates: start: 2007
  6. HYDROMORPH CONTIN [Suspect]
     Indication: PRODUCT USED FOR UNKNOWN INDICATION
     Dosage: 3 MG, UNK
     Dates: start: 20110121, end: 20110217
  7. HYDROMORPH CONTIN [Suspect]
     Dosage: 6 MG, UNK
     Dates: start: 20110121, end: 20110217
  8. BUTRANS [Suspect]
     Indication: PRODUCT USED FOR UNKNOWN INDICATION
     Dosage: 10 MCG, Q1H
     Dates: start: 20101207, end: 20101213
  9. BUTRANS [Suspect]
     Dosage: 5 MCG, Q1H
     Dates: start: 20101202, end: 20101208
  10. FENTANYL [Suspect]
     Indication: PRODUCT USED FOR UNKNOWN INDICATION
     Dosage: 25 MCG, Q1H
     Dates: start: 20101110, end: 20101209
  11. OXYCODONE [Suspect]
     Indication: PRODUCT USED FOR UNKNOWN INDICATION
     Dosage: 10 MG, UNK
     Dates: start: 20110524, end: 20110606
  12. HYDROMORPHONE [Suspect]
     Indication: PRODUCT USED FOR UNKNOWN INDICATION
     Dosage: 1 MG, UNK
     Dates: start: 20110121, end: 20110125
  13. CODEINE [Suspect]
     Indication: PRODUCT USED FOR UNKNOWN INDICATION
     Dosage: 30 MG, UNK
     Dates: start: 20110316, end: 20110414
  14. GABAPENTIN [Concomitant]
     Indication: PRODUCT USED FOR UNKNOWN INDICATION
     Dosage: 300 MG, UNK
     Dates: start: 20101009, end: 20120305
  15. LENOLTEC WITH CODEINE NO 4 [Concomitant]
     Indication: PRODUCT USED FOR UNKNOWN INDICATION
     Dosage: UNK
     Dates: start: 20101214, end: 20120215
  16. APO-AMOXI [Concomitant]
     Indication: PRODUCT USED FOR UNKNOWN INDICATION
     Dosage: 500 MG, UNK
     Dates: start: 20120103, end: 20120112
  17. NASONEX [Concomitant]
     Indication: PRODUCT USED FOR UNKNOWN INDICATION
     Dosage: 50 MCG, UNK
     Dates: start: 20120103, end: 20120201
  18. LENOLTECH NO 3 [Concomitant]
     Indication: PRODUCT USED FOR UNKNOWN INDICATION
     Dosage: UNK
     Dates: start: 20100920, end: 20120201
  19. CIPRALEX [Concomitant]
     Indication: PRODUCT USED FOR UNKNOWN INDICATION
     Dosage: 10 MG, UNK
     Dates: start: 20111108, end: 20111205
  20. DICLOFENAC TEVA [Concomitant]
     Indication: PRODUCT USED FOR UNKNOWN INDICATION
     Dosage: 50 MG, UNK
     Dates: start: 20111105, end: 20111205
  21. BUSPIRONE [Concomitant]
     Indication: PRODUCT USED FOR UNKNOWN INDICATION
     Dosage: 10 MG, UNK
     Dates: start: 20111101, end: 20111114
  22. APO-METHOPRAZINE [Concomitant]
     Indication: PRODUCT USED FOR UNKNOWN INDICATION
     Dosage: 5 MG, UNK
     Dates: start: 20111028, end: 20111106
  23. NOVO-CLONIDINE [Concomitant]
     Indication: PRODUCT USED FOR UNKNOWN INDICATION
     Dosage: 0.1 MG, UNK
     Dates: start: 20111028, end: 20111106
  24. DIAZEPAM [Concomitant]
     Indication: PRODUCT USED FOR UNKNOWN INDICATION
     Dosage: 5 MG, UNK
     Dates: start: 20111028, end: 20111106
  25. TRIDURAL [Concomitant]
     Indication: PRODUCT USED FOR UNKNOWN INDICATION
     Dosage: 300 MG, UNK
     Dates: start: 20110705, end: 20110807
  26. TRIDURAL [Concomitant]
     Dosage: 200 MG, UNK
     Dates: start: 20110211, end: 20110712
  27. TRIDURAL [Concomitant]
     Dosage: 100 MG, UNK
     Dates: start: 20101211, end: 20110310
  28. GARAMYCIN [Concomitant]
     Indication: PRODUCT USED FOR UNKNOWN INDICATION
     Dosage: 0.3 %, UNK
     Dates: start: 20110630, end: 20110630
  29. PMS-TRAZODONE [Concomitant]
     Indication: PRODUCT USED FOR UNKNOWN INDICATION
     Dosage: 50 MG, UNK
     Dates: start: 20110630, end: 20110802
  30. VENLAFAXINE [Concomitant]
     Indication: PRODUCT USED FOR UNKNOWN INDICATION
     Dosage: 150 MG, UNK
     Dates: start: 20110104, end: 20110724
  31. ZOPICLONE [Concomitant]
     Indication: PRODUCT USED FOR UNKNOWN INDICATION
     Dosage: 7.5 MG, UNK
     Dates: start: 20110412, end: 20110701
  32. VENLAFAXINE TEVA [Concomitant]
     Indication: PRODUCT USED FOR UNKNOWN INDICATION
     Dosage: 75 MG, UNK
     Dates: start: 20101109, end: 20110106
  33. DOM-CLONAZEPAM [Concomitant]
     Indication: PRODUCT USED FOR UNKNOWN INDICATION
     Dosage: 0.5 MG, UNK
     Dates: start: 20101109, end: 20110705
  34. ELAVIL                             /00002202/ [Concomitant]
     Indication: PRODUCT USED FOR UNKNOWN INDICATION
     Dosage: 10 MG, UNK
     Dates: start: 20110308, end: 20110705
  35. ELAVIL                             /00002202/ [Concomitant]
     Dosage: 50 MG, UNK
     Dates: start: 20110328, end: 20110430
  36. ELAVIL                             /00002202/ [Concomitant]
     Dosage: 25 MG, UNK
     Dates: start: 20101110, end: 20110417
  37. RALIVIA [Concomitant]
     Indication: PRODUCT USED FOR UNKNOWN INDICATION
     Dosage: 300 MG, UNK
     Dates: start: 20101217, end: 20110506
  38. RALIVIA [Concomitant]
     Dosage: 200 MG, UNK
     Dates: start: 20110222, end: 20110426
  39. RALIVIA [Concomitant]
     Dosage: 100 MG, UNK
     Dates: start: 20101005, end: 20110513
  40. NOVO-LORAZEM [Concomitant]
     Indication: PRODUCT USED FOR UNKNOWN INDICATION
     Dosage: 0.5 MG, UNK
     Dates: start: 20110417, end: 20110423
  41. GARASONE OPH/OT [Concomitant]
     Indication: PRODUCT USED FOR UNKNOWN INDICATION
     Dosage: UNK
     Dates: start: 20110319, end: 20110323
  42. XARELTO [Concomitant]
     Indication: PRODUCT USED FOR UNKNOWN INDICATION
     Dosage: 10 MG, UNK
     Dates: start: 20110121, end: 20110219
  43. LIDOCAINE [Concomitant]
     Indication: PRODUCT USED FOR UNKNOWN INDICATION
     Dosage: 10 %, UNK
     Dates: start: 20101231, end: 20110129
  44. MIRTAZAPINE [Concomitant]
     Indication: PRODUCT USED FOR UNKNOWN INDICATION
     Dosage: 15 MG, UNK
     Dates: start: 20101231, end: 20110202
  45. QUETIAPINE [Concomitant]
     Indication: PRODUCT USED FOR UNKNOWN INDICATION
     Dosage: 25 MG, UNK
     Dates: start: 20101231, end: 20110202
  46. ARTHROTEC [Concomitant]
     Indication: PRODUCT USED FOR UNKNOWN INDICATION
     Dosage: UNK
     Dates: start: 20101202, end: 20110104
  47. ALPRAZOLAM TEVA [Concomitant]
     Indication: PRODUCT USED FOR UNKNOWN INDICATION
     Dosage: 0.25 MG, UNK
     Dates: start: 20101022, end: 20101031
  48. NU-RANIT [Concomitant]
     Indication: PRODUCT USED FOR UNKNOWN INDICATION
     Dosage: 150 MG, UNK
     Dates: start: 20100923, end: 20101026
  49. APO-KETOROLAC [Concomitant]
     Indication: PRODUCT USED FOR UNKNOWN INDICATION
     Dosage: 10 MG, UNK
     Dates: start: 20100920, end: 20100929
  50. NU-CEPHALEX [Concomitant]
     Indication: PRODUCT USED FOR UNKNOWN INDICATION
     Dosage: 250 MG, UNK
     Dates: start: 20100916, end: 20100922

REACTIONS (24)
  - Drug dependence [Unknown]
  - Drug abuse [Unknown]
  - Suicidal ideation [Unknown]
  - Drug withdrawal syndrome [Unknown]
  - Convulsion [Unknown]
  - Dehydration [Unknown]
  - Depression [Unknown]
  - Pain [Unknown]
  - Insomnia [Unknown]
  - Anxiety [Unknown]
  - Anhedonia [Unknown]
  - Impaired work ability [Unknown]
  - Stress [Unknown]
  - Emotional distress [Unknown]
  - Loss of employment [Unknown]
  - Marital problem [Unknown]
  - Family stress [Unknown]
  - Job dissatisfaction [Unknown]
  - Affect lability [Unknown]
  - Mobility decreased [Unknown]
  - Diarrhoea [Unknown]
  - Chills [Unknown]
  - Crying [Unknown]
  - Rash [Unknown]
